FAERS Safety Report 16746594 (Version 6)
Quarter: 2020Q3

REPORT INFORMATION
  Report Type: Report from Study
  Country: GB (occurrence: GB)
  Receive Date: 20190827
  Receipt Date: 20200928
  Transmission Date: 20201102
  Serious: Yes (Death, Hospitalization)
  Sender: FDA-Public Use
  Company Number: GB-MYLANLABS-2019M1079721

PATIENT
  Age: 48 Year
  Sex: Female

DRUGS (88)
  1. GABAPENTIN. [Concomitant]
     Active Substance: GABAPENTIN
     Indication: BONE PAIN
     Dosage: 600 MILLIGRAM, QD
     Route: 048
     Dates: start: 20181220
  2. ORAMORPH [Concomitant]
     Active Substance: MORPHINE SULFATE
     Indication: BONE PAIN
     Dosage: 20 MILLIGRAM, PRN
     Route: 048
     Dates: end: 20171002
  3. ZOMORPH [Concomitant]
     Active Substance: MORPHINE SULFATE
     Indication: MUSCULOSKELETAL CHEST PAIN
     Dosage: 280 MILLIGRAM, QD
     Route: 048
     Dates: start: 20171002, end: 20190116
  4. ZOMORPH [Concomitant]
     Active Substance: MORPHINE SULFATE
     Dosage: 480 MILLIGRAM, QD
     Route: 048
     Dates: start: 20190116
  5. FLU VACCINE VII [Concomitant]
     Active Substance: INFLUENZA VIRUS VACCINE
     Indication: ANTIVIRAL PROPHYLAXIS
     Dosage: UNK
     Route: 058
     Dates: start: 20171211, end: 20171211
  6. CALCICHEW D3 FORTE [Concomitant]
     Active Substance: CALCIUM\CHOLECALCIFEROL
     Indication: METASTASIS
     Dosage: 1 DOSAGE FORM, QD DOSE: 1 TABLET
     Route: 048
     Dates: start: 20171007
  7. LANSOPRAZOLE. [Concomitant]
     Active Substance: LANSOPRAZOLE
     Indication: PROPHYLAXIS
     Dosage: 30 MILLIGRAM, QD
     Route: 048
  8. DIAMORPHINE [Concomitant]
     Active Substance: DIAMORPHINE
     Dosage: 270 MILLIGRAM
     Route: 058
     Dates: start: 20190515, end: 20190516
  9. LEVOMEPROMAZINE [Concomitant]
     Active Substance: LEVOMEPROMAZINE
     Indication: RESTLESSNESS
     Dosage: 50 MILLIGRAM
     Route: 058
     Dates: start: 20190516, end: 20190517
  10. MIDAZOLAM. [Concomitant]
     Active Substance: MIDAZOLAM
     Dosage: 5 MILLIGRAM
     Route: 058
     Dates: start: 20190515, end: 20190515
  11. HALOPERIDOL. [Concomitant]
     Active Substance: HALOPERIDOL
     Dosage: 3 MILLIGRAM, QD
     Route: 058
     Dates: start: 20190514, end: 20190514
  12. HALOPERIDOL. [Concomitant]
     Active Substance: HALOPERIDOL
     Dosage: 3 GRAM, QD END OF LIFE DISTRESS
     Route: 058
     Dates: start: 20190514, end: 20190514
  13. CARBOCISTEINE [Concomitant]
     Active Substance: CARBOCYSTEINE
     Dosage: 2250 MILLIGRAM, QD
     Route: 048
     Dates: start: 20190512, end: 20190513
  14. DIAMORPHINE [Concomitant]
     Active Substance: DIAMORPHINE
     Dosage: 270 MILLIGRAM
     Route: 042
     Dates: start: 20190515, end: 20190516
  15. GABAPENTIN. [Concomitant]
     Active Substance: GABAPENTIN
     Dosage: 1800 MILLIGRAM, QD
     Route: 048
     Dates: start: 20190324, end: 20190513
  16. GABAPENTIN. [Concomitant]
     Active Substance: GABAPENTIN
     Dosage: 300 MILLIGRAM
     Route: 048
     Dates: start: 20181220
  17. SALBUTAMOL [Concomitant]
     Active Substance: ALBUTEROL
     Dosage: 10 MILLIGRAM, QD
     Dates: start: 20190512, end: 20190515
  18. ZOMORPH [Concomitant]
     Active Substance: MORPHINE SULFATE
     Dosage: 200 MILLIGRAM, QD
     Route: 048
     Dates: end: 20171001
  19. NITROFURANTOIN. [Concomitant]
     Active Substance: NITROFURANTOIN
     Indication: URINARY TRACT INFECTION
     Dosage: 150 MILLIGRAM, QD
     Route: 048
     Dates: start: 20190124, end: 20190127
  20. DIAMORPHINE [Concomitant]
     Active Substance: DIAMORPHINE
     Indication: BONE PAIN
     Dosage: 30 MILLIGRAM
     Route: 058
     Dates: start: 20190514, end: 20190515
  21. MIDAZOLAM. [Concomitant]
     Active Substance: MIDAZOLAM
     Dosage: 50 MILLIGRAM, PRN
     Route: 058
     Dates: start: 20190516, end: 20190517
  22. MIDAZOLAM. [Concomitant]
     Active Substance: MIDAZOLAM
     Dosage: 10 MILLIGRAM
     Route: 058
     Dates: start: 20190514, end: 20190515
  23. MIDAZOLAM. [Concomitant]
     Active Substance: MIDAZOLAM
     Dosage: 7.5 MILLIGRAM
     Route: 058
     Dates: start: 20190515, end: 20190516
  24. MORPHINE [Concomitant]
     Active Substance: MORPHINE
     Indication: BONE PAIN
     Dosage: 10 MILLIGRAM, PRN
     Route: 042
     Dates: start: 20190324, end: 20190324
  25. GLYCOPYRONIUM [Concomitant]
     Active Substance: GLYCOPYRRONIUM
     Dosage: 200 MICROGRAM
     Route: 058
     Dates: start: 20190515, end: 20190516
  26. PARACETAMOL [Concomitant]
     Active Substance: ACETAMINOPHEN
     Dosage: 1 GRAM
     Route: 042
     Dates: end: 20190515
  27. DEXAMETHASONE. [Concomitant]
     Active Substance: DEXAMETHASONE
     Dosage: 5 MILLIGRAM, QD PROPHYLACTIC
     Route: 048
     Dates: start: 20190510, end: 20190513
  28. LORAZEPAM. [Concomitant]
     Active Substance: LORAZEPAM
     Dosage: 4 MILLIGRAM, QD, END OF LIFE DISTRESS
     Route: 048
     Dates: start: 20190514, end: 20190514
  29. SALINE                             /00075401/ [Concomitant]
     Active Substance: SODIUM CHLORIDE
     Dosage: UNK UNK, QID, NEBULISER 0.9 AMPOULE
     Dates: start: 20190509, end: 20190515
  30. TRASTUZUMAB. [Suspect]
     Active Substance: TRASTUZUMAB
     Dosage: 350 MILLIGRAM, Q3W
     Route: 042
     Dates: start: 20190115
  31. GABAPENTIN. [Concomitant]
     Active Substance: GABAPENTIN
     Indication: MUSCULOSKELETAL CHEST PAIN
     Dosage: 300MG MORNING AND 600MG EVENING
     Route: 048
     Dates: start: 20181229
  32. GABAPENTIN. [Concomitant]
     Active Substance: GABAPENTIN
     Dosage: 600 MILLIGRAM
     Route: 048
     Dates: start: 20190324, end: 20190513
  33. SALBUTAMOL [Concomitant]
     Active Substance: ALBUTEROL
     Dosage: 100 MICROGRAM, PRN
     Route: 055
  34. SALBUTAMOL [Concomitant]
     Active Substance: ALBUTEROL
     Dosage: 100 MICROGRAM INHALANT
  35. ORAMORPH [Concomitant]
     Active Substance: MORPHINE SULFATE
     Dosage: 20 MILLIGRAM
     Route: 048
     Dates: end: 20171002
  36. FLUCLOXACILLIN [Concomitant]
     Active Substance: FLUCLOXACILLIN
     Indication: SKIN INFECTION
     Dosage: 2000 MILLIGRAM, QD (500 MG, QID)
     Route: 048
     Dates: start: 20180803, end: 20180810
  37. LAXIDO [Concomitant]
     Active Substance: POLYETHYLENE GLYCOL 3350\POTASSIUM CHLORIDE\SODIUM BICARBONATE\SODIUM CHLORIDE
     Dosage: 1 DOSAGE FORM, QD DOSE: 1 SACHET
     Route: 048
  38. CALCICHEW D3 FORTE [Concomitant]
     Active Substance: CALCIUM\CHOLECALCIFEROL
     Dosage: UNK, QD 1 TABLET
     Route: 048
     Dates: start: 20171007
  39. DIAMORPHINE [Concomitant]
     Active Substance: DIAMORPHINE
     Dosage: 350 MILLIGRAM
     Route: 058
     Dates: start: 20190516, end: 20190517
  40. PARACETAMOL [Concomitant]
     Active Substance: ACETAMINOPHEN
     Indication: BONE PAIN
     Dosage: 4 GRAM, QD(1 GRAM,QID)
     Route: 042
     Dates: start: 20190324, end: 20190515
  41. DEXAMETHASONE. [Concomitant]
     Active Substance: DEXAMETHASONE
     Dosage: 3.3 MILLIGRAM, QD PROPHYLACTIC
     Route: 058
     Dates: start: 20190514, end: 20190515
  42. DIAMORPHINE [Concomitant]
     Active Substance: DIAMORPHINE
     Dosage: 180 MILLIGRAM
     Route: 042
     Dates: start: 20190514, end: 20190515
  43. DIAMORPHINE [Concomitant]
     Active Substance: DIAMORPHINE
     Dosage: 2.5 MILLIGRAM
     Route: 042
     Dates: start: 20190514, end: 20190514
  44. TRASTUZUMAB. [Suspect]
     Active Substance: TRASTUZUMAB
     Indication: BREAST CANCER
     Dosage: 600 MILLIGRAM, Q3W
     Route: 058
     Dates: start: 20170918, end: 20181205
  45. SALBUTAMOL [Concomitant]
     Active Substance: ALBUTEROL
     Dosage: 100 MICROGRAM
     Route: 055
  46. CITALOPRAM [Concomitant]
     Active Substance: CITALOPRAM HYDROBROMIDE
     Dosage: 20 MILLIGRAM, QD
     Route: 048
  47. DENOSUMAB [Concomitant]
     Active Substance: DENOSUMAB
     Dosage: 120 MILLIGRAM, MONTHLY
     Route: 058
     Dates: start: 20171007, end: 20181120
  48. DIAMORPHINE [Concomitant]
     Active Substance: DIAMORPHINE
     Dosage: 2.5 MILLIGRAM
     Route: 058
     Dates: start: 20190514, end: 20190514
  49. LEVOMEPROMAZINE [Concomitant]
     Active Substance: LEVOMEPROMAZINE
     Dosage: 18.75 MILLIGRAM
     Route: 058
     Dates: start: 20190515, end: 20190515
  50. MIDAZOLAM. [Concomitant]
     Active Substance: MIDAZOLAM
     Dosage: 2.5 MILLIGRAM, PRN
     Route: 058
     Dates: start: 20190514, end: 20190514
  51. MIDAZOLAM. [Concomitant]
     Active Substance: MIDAZOLAM
     Dosage: 2.5 MILLIGRAM
     Route: 058
     Dates: start: 20190514, end: 20190514
  52. DIFFLAM [Concomitant]
     Active Substance: BENZYDAMINE HYDROCHLORIDE
     Dosage: UNK UNK, QD
     Route: 061
     Dates: start: 20190503, end: 20190513
  53. DIFFLAM [Concomitant]
     Active Substance: BENZYDAMINE HYDROCHLORIDE
     Dosage: UNK UNK, TID MOUTHCARE
     Route: 061
     Dates: start: 20190513, end: 20190513
  54. LORAZEPAM. [Concomitant]
     Active Substance: LORAZEPAM
     Dosage: 4 MILLIGRAM, QD (1 MILLIGAM, QID)
     Route: 048
     Dates: start: 20190514, end: 20190514
  55. INHIXA [Concomitant]
     Active Substance: ENOXAPARIN SODIUM
     Indication: THROMBOSIS PROPHYLAXIS
     Dosage: 40 MILLIGRAM, QD
     Route: 058
     Dates: start: 20190501, end: 20190513
  56. CASSIA ACUTIFOLIA [Concomitant]
     Dosage: 2 DOSAGE FORM, QD
     Route: 048
  57. SENNA                              /00142201/ [Concomitant]
     Active Substance: SENNA LEAF
     Dosage: UNK, QD, 2 TABLET
     Route: 048
  58. MIDAZOLAM. [Concomitant]
     Active Substance: MIDAZOLAM
     Indication: BONE PAIN
     Dosage: 5 MILLIGRAM, PRN
     Route: 058
     Dates: start: 20190515, end: 20190515
  59. MIDAZOLAM. [Concomitant]
     Active Substance: MIDAZOLAM
     Dosage: 30 MILLIGRAM
     Route: 058
     Dates: start: 20190515, end: 20190516
  60. MIDAZOLAM. [Concomitant]
     Active Substance: MIDAZOLAM
     Dosage: 7.5 MILLIGRAM, PRN
     Route: 058
     Dates: start: 20190515, end: 20190516
  61. MIDAZOLAM. [Concomitant]
     Active Substance: MIDAZOLAM
     Dosage: 50 MILLIGRAM
     Route: 058
     Dates: start: 20190516, end: 20190517
  62. DIFFLAM [Concomitant]
     Active Substance: BENZYDAMINE HYDROCHLORIDE
     Dosage: UNK UNK, TID
     Route: 061
     Dates: start: 20190513, end: 20190513
  63. DEXAMETHASONE. [Concomitant]
     Active Substance: DEXAMETHASONE
     Dosage: 2 MILLIGRAM, QD PROPHYLACTIC
     Route: 048
     Dates: start: 20190501, end: 20190501
  64. DEXAMETHASONE. [Concomitant]
     Active Substance: DEXAMETHASONE
     Dosage: 6 MILLIGRAM, QD PROPHYLACTIC
     Route: 048
     Dates: start: 20190502, end: 20190509
  65. SANDO K                            /00031402/ [Concomitant]
     Active Substance: POTASSIUM CHLORIDE
     Dosage: UNK UNK, QD 2 TABLET
     Route: 048
     Dates: start: 20190513, end: 20190513
  66. DIAMORPHINE [Concomitant]
     Active Substance: DIAMORPHINE
     Dosage: 1.25 MILLIGRAM, PRN
     Route: 042
     Dates: start: 20190324, end: 20190324
  67. LAXIDO [Concomitant]
     Active Substance: POLYETHYLENE GLYCOL 3350\POTASSIUM CHLORIDE\SODIUM BICARBONATE\SODIUM CHLORIDE
     Dosage: 1 DOSAGE FORM
     Route: 048
  68. IBUPROFEN. [Concomitant]
     Active Substance: IBUPROFEN
     Dosage: 1200 MILLIGRAM, QD
     Route: 048
  69. DIAMORPHINE [Concomitant]
     Active Substance: DIAMORPHINE
     Dosage: 180 MILLIGRAM
     Route: 058
     Dates: start: 20190514, end: 20190515
  70. LEVOMEPROMAZINE [Concomitant]
     Active Substance: LEVOMEPROMAZINE
     Dosage: 25 MILLIGRAM
     Route: 058
     Dates: start: 20190515, end: 20190516
  71. SENNA                              /00142201/ [Concomitant]
     Active Substance: SENNA LEAF
     Dosage: 2 DOSAGE FORM, QD
     Route: 048
  72. MIDAZOLAM. [Concomitant]
     Active Substance: MIDAZOLAM
     Dosage: 10 MILLIGRAM, PRN
     Route: 058
     Dates: start: 20190515, end: 20190515
  73. MORPHINE [Concomitant]
     Active Substance: MORPHINE
     Dosage: 10 MILLIGRAM
     Route: 042
     Dates: start: 20190324, end: 20190324
  74. DEXAMETHASONE. [Concomitant]
     Active Substance: DEXAMETHASONE
     Dosage: 6 MILLIGRAM, QD
     Route: 048
     Dates: start: 20010502, end: 20190509
  75. INHIXA [Concomitant]
     Active Substance: ENOXAPARIN SODIUM
     Indication: PULMONARY EMBOLISM
     Dosage: 40 MILLIGRAM, QD
     Route: 058
     Dates: start: 20190501, end: 20190501
  76. SANDO K                            /00031402/ [Concomitant]
     Active Substance: POTASSIUM CHLORIDE
     Indication: HYPOKALAEMIA
     Dosage: 4 DOSAGE FORM, QD
     Route: 048
     Dates: start: 20190513, end: 20190513
  77. DIAMORPHINE [Concomitant]
     Active Substance: DIAMORPHINE
     Dosage: 350 MILLIGRAM
     Route: 042
     Dates: start: 20190516, end: 20190517
  78. LETROZOLE. [Suspect]
     Active Substance: LETROZOLE
     Indication: BREAST CANCER
     Dosage: 2.5 MILLIGRAM, QD
     Route: 048
     Dates: start: 201709
  79. PARACETAMOL [Concomitant]
     Active Substance: ACETAMINOPHEN
     Indication: BONE PAIN
     Dosage: 4 GRAM, QD(1 GRAM,QID)
     Route: 048
  80. DIAMORPHINE [Concomitant]
     Active Substance: DIAMORPHINE
     Dosage: 40 MILLIGRAM
     Route: 058
     Dates: start: 20190515, end: 20190516
  81. GLYCOPYRONIUM [Concomitant]
     Active Substance: GLYCOPYRRONIUM
     Dosage: 1.2 MILLIGRAM
     Route: 058
     Dates: start: 20190515, end: 20190517
  82. DEXAMETHASONE. [Concomitant]
     Active Substance: DEXAMETHASONE
     Dosage: 3.3 MILLIGRAM, QD
     Route: 048
     Dates: start: 20190514, end: 20190515
  83. DIAMORPHINE [Concomitant]
     Active Substance: DIAMORPHINE
     Dosage: 40 MILLIGRAM
     Route: 042
     Dates: start: 20190515, end: 20190516
  84. DIAMORPHINE [Concomitant]
     Active Substance: DIAMORPHINE
     Dosage: 30 MILLIGRAM
     Route: 042
     Dates: start: 20190514, end: 20190515
  85. ORAMORPH [Concomitant]
     Active Substance: MORPHINE SULFATE
     Dosage: 80 MILLIGRAM
     Route: 048
     Dates: start: 20190506, end: 20190513
  86. AMOXICILLIN. [Concomitant]
     Active Substance: AMOXICILLIN
     Indication: SINUSITIS
     Dosage: 2000 MILLIGRAM, QD
     Route: 048
     Dates: start: 20180911, end: 20180918
  87. DEXAMETHASONE. [Concomitant]
     Active Substance: DEXAMETHASONE
     Dosage: 5 MILLIGRAM, QD
     Route: 048
     Dates: start: 20190510, end: 20190513
  88. NYSTATIN. [Concomitant]
     Active Substance: NYSTATIN
     Indication: ORAL CANDIDIASIS
     Dosage: 4 MILLILITER, QD
     Route: 048
     Dates: start: 20190508, end: 20190512

REACTIONS (8)
  - Pneumonia [Fatal]
  - Pain in extremity [Not Recovered/Not Resolved]
  - Sinusitis [Recovered/Resolved]
  - Neck pain [Recovered/Resolved]
  - Skin infection [Recovered/Resolved]
  - Oral candidiasis [Recovered/Resolved]
  - Hypoaesthesia [Not Recovered/Not Resolved]
  - Arthralgia [Recovered/Resolved]

NARRATIVE: CASE EVENT DATE: 20180305
